FAERS Safety Report 21602238 (Version 1)
Quarter: 2022Q4

REPORT INFORMATION
  Report Type: Spontaneous
  Country: US (occurrence: US)
  Receive Date: 20221116
  Receipt Date: 20221116
  Transmission Date: 20230113
  Serious: No
  Sender: FDA-Public Use
  Company Number: US-AMNEAL PHARMACEUTICALS-2022-AMRX-00170

PATIENT
  Sex: Female
  Weight: 65.76 kg

DRUGS (1)
  1. ITRACONAZOLE [Suspect]
     Active Substance: ITRACONAZOLE
     Indication: Fungal infection
     Dosage: 2 CAPSULES, DAILY
     Route: 048
     Dates: start: 20211118

REACTIONS (1)
  - Alopecia [Not Recovered/Not Resolved]
